FAERS Safety Report 8103036-2 (Version None)
Quarter: 2012Q1

REPORT INFORMATION
  Report Type: 
  Country: None (occurrence: None)
  Receive Date: 20120201
  Receipt Date: 20120201
  Transmission Date: 20120608
  Serious: No
  Sender: FDA-Public Use
  Company Number: None

PATIENT
  Sex: Female
  Weight: 61.688 kg

DRUGS (1)
  1. CIPROFLOXACIN [Suspect]
     Indication: URINARY TRACT INFECTION

REACTIONS (16)
  - PLANTAR FASCIITIS [None]
  - AMNESIA [None]
  - ASTHENIA [None]
  - ANXIETY [None]
  - PAIN IN EXTREMITY [None]
  - DISTURBANCE IN ATTENTION [None]
  - DECREASED APPETITE [None]
  - WAXY FLEXIBILITY [None]
  - MUSCULAR WEAKNESS [None]
  - DRY MOUTH [None]
  - TENDON PAIN [None]
  - WEIGHT DECREASED [None]
  - URTICARIA [None]
  - TENDON DISORDER [None]
  - BALANCE DISORDER [None]
  - VISUAL FIELD DEFECT [None]
